FAERS Safety Report 17482267 (Version 1)
Quarter: 2020Q1

REPORT INFORMATION
  Report Type: Spontaneous
  Country: US (occurrence: US)
  Receive Date: 20200302
  Receipt Date: 20200302
  Transmission Date: 20200409
  Serious: No
  Sender: FDA-Public Use
  Company Number: US-BAYER-2020-017485

PATIENT
  Sex: Female
  Weight: 63.5 kg

DRUGS (20)
  1. ASPIRIN (PAIN AND FEVER) [Suspect]
     Active Substance: ASPIRIN
  2. CELEBREX [Concomitant]
     Active Substance: CELECOXIB
  3. LEVOFLOXACIN. [Concomitant]
     Active Substance: LEVOFLOXACIN
  4. TYLENOL PM [Concomitant]
     Active Substance: ACETAMINOPHEN\DIPHENHYDRAMINE
  5. PROPOFOL. [Concomitant]
     Active Substance: PROPOFOL
  6. CODEINE [Concomitant]
     Active Substance: CODEINE
  7. PEPTO-BISMOL [Concomitant]
     Active Substance: BISMUTH SUBSALICYLATE
  8. PARAFFIN SOFT [Concomitant]
     Active Substance: PARAFFIN
  9. VICODIN [Concomitant]
     Active Substance: ACETAMINOPHEN\HYDROCODONE BITARTRATE
  10. IBUPROFEN. [Concomitant]
     Active Substance: IBUPROFEN
     Indication: PAIN
     Dosage: 1 DF, PRN
  11. AFLURIA NOS [Concomitant]
     Active Substance: INFLUENZA VIRUS VACCINE TRIVALENT TYPE A+B AFLURIA
  12. LANACORT [Concomitant]
  13. PERCOCET [Concomitant]
     Active Substance: ACETAMINOPHEN\OXYCODONE HYDROCHLORIDE
  14. ULTRACET [Concomitant]
     Active Substance: ACETAMINOPHEN\TRAMADOL HYDROCHLORIDE
  15. AMBIEN [Concomitant]
     Active Substance: ZOLPIDEM TARTRATE
  16. LANOCONAZOLE [Concomitant]
     Active Substance: LANOCONAZOLE
  17. ALEVE [Suspect]
     Active Substance: NAPROXEN SODIUM
  18. HYDROCORTISONE. [Concomitant]
     Active Substance: HYDROCORTISONE
  19. VALDECOXIB [Concomitant]
     Active Substance: VALDECOXIB
  20. AMITRIPTYLINE [Concomitant]
     Active Substance: AMITRIPTYLINE

REACTIONS (1)
  - Drug hypersensitivity [Unknown]
